FAERS Safety Report 4821564-X (Version None)
Quarter: 2005Q4

REPORT INFORMATION
  Report Type: 
  Country: None (occurrence: None)
  Receive Date: 20051107
  Receipt Date: 20050722
  Transmission Date: 20060501
  Serious: Yes (Other)
  Sender: FDA-Public Use
  Company Number: PHRM2005FR02147

PATIENT
  Age: 75 Year
  Sex: Female
  Weight: 50 kg

DRUGS (2)
  1. THALIDOMIDE [Concomitant]
  2. ZOMETA [Suspect]
     Indication: MULTIPLE MYELOMA
     Dosage: 4 MG, QMO
     Route: 042
     Dates: start: 20040901, end: 20050701

REACTIONS (4)
  - OSTEONECROSIS [None]
  - SURGERY [None]
  - TOOTH EXTRACTION [None]
  - TOOTH INFECTION [None]
